FAERS Safety Report 8510048-3 (Version None)
Quarter: 2012Q2

REPORT INFORMATION
  Report Type: 
  Country: None (occurrence: None)
  Receive Date: 20120405
  Receipt Date: 20081013
  Transmission Date: 20120825
  Serious: Yes (Other)
  Sender: FDA-Public Use
  Company Number: PHEH2008US07844

PATIENT
  Age: 49 Year
  Sex: Female

DRUGS (1)
  1. RECLAST [Suspect]
     Dosage: INFUSION
     Dates: start: 20080701

REACTIONS (4)
  - MYALGIA [None]
  - ARTHRALGIA [None]
  - GAIT DISTURBANCE [None]
  - BONE PAIN [None]
